FAERS Safety Report 4502253-8 (Version None)
Quarter: 2004Q4

REPORT INFORMATION
  Report Type: 
  Country: None (occurrence: None)
  Receive Date: 20041109
  Receipt Date: 20041026
  Transmission Date: 20050328
  Serious: Yes (Hospitalization)
  Sender: FDA-Public Use
  Company Number: DE_041014557

PATIENT
  Age: 58 Year
  Sex: Male

DRUGS (6)
  1. ZYPREXA [Suspect]
     Indication: SCHIZOAFFECTIVE DISORDER
     Dosage: 20 MG DAY
     Dates: start: 20030101, end: 20030823
  2. QUILONUM (LITHIUM ACETATE) [Concomitant]
  3. AKINETON [Concomitant]
  4. LEVOTHYROXINE SODIUM [Concomitant]
  5. CAPTOHEXAL (CAPTOPRIL BIOCHEMIE) [Concomitant]
  6. FERRO SANOL [Concomitant]

REACTIONS (5)
  - DEHYDRATION [None]
  - DYSPNOEA [None]
  - GENERAL PHYSICAL HEALTH DETERIORATION [None]
  - NEUROLEPTIC MALIGNANT SYNDROME [None]
  - RHABDOMYOLYSIS [None]
